FAERS Safety Report 4354820-2 (Version None)
Quarter: 2004Q2

REPORT INFORMATION
  Report Type: 
  Country: None (occurrence: None)
  Receive Date: 20040507
  Receipt Date: 20040430
  Transmission Date: 20050107
  Serious: Yes (Hospitalization)
  Sender: FDA-Public Use
  Company Number: DK-ROCHE-365960

PATIENT
  Age: 60 Year
  Sex: Male

DRUGS (5)
  1. INTERFERON ALFA-2A [Suspect]
     Indication: LYMPHOMA
     Route: 058
     Dates: start: 20040414, end: 20040420
  2. CITALOPRAM [Concomitant]
     Dosage: PRETRIAL.
     Route: 048
  3. SIMVASTATIN [Concomitant]
     Route: 048
  4. ASPIRIN [Concomitant]
     Route: 048
  5. PARACETAMOL [Concomitant]
     Route: 048

REACTIONS (5)
  - C-REACTIVE PROTEIN INCREASED [None]
  - INFLUENZA LIKE ILLNESS [None]
  - LEUKOPENIA [None]
  - MYALGIA [None]
  - NEUTROPENIA [None]
